FAERS Safety Report 7306039 (Version 6)
Quarter: 2013Q4

REPORT INFORMATION
  Report Type: Spontaneous
  Country: US (occurrence: US)
  Receive Date: 20100305
  Receipt Date: 20131227
  Transmission Date: 20140711
  Serious: Yes (Hospitalization, Other)
  Sender: FDA-Public Use
  Company Number: US-BIOGENIDEC-2010BI007126

PATIENT
  Age: 47 Year
  Sex: Female

DRUGS (5)
  1. TYSABRI [Suspect]
     Indication: MULTIPLE SCLEROSIS
     Route: 042
     Dates: start: 20070108
  2. PHENERGAN [Concomitant]
     Indication: NAUSEA
  3. REQUIP [Concomitant]
     Indication: RESTLESS LEGS SYNDROME
  4. TORADOL [Concomitant]
     Indication: MIGRAINE
  5. TOPAMAX [Concomitant]
     Indication: MIGRAINE

REACTIONS (6)
  - Bradycardia [Recovered/Resolved]
  - Epilepsy [Not Recovered/Not Resolved]
  - Cardiovascular disorder [Unknown]
  - Multiple sclerosis relapse [Not Recovered/Not Resolved]
  - Hypotension [Recovered/Resolved]
  - Fall [Recovered/Resolved]
